FAERS Safety Report 20167297 (Version 1)
Quarter: 2021Q4

REPORT INFORMATION
  Report Type: Spontaneous
  Country: US (occurrence: None)
  Receive Date: 20211208
  Receipt Date: 20211208
  Transmission Date: 20220304
  Serious: Yes (Hospitalization)
  Sender: FDA-Public Use
  Company Number: None

PATIENT
  Sex: Female

DRUGS (6)
  1. TACROLIMUS [Suspect]
     Active Substance: TACROLIMUS
     Indication: Chronic hepatitis C
     Dosage: OTHER FREQUENCY : Q12HOURS;?
     Route: 048
     Dates: start: 20210825
  2. VITA PLUS E [Concomitant]
  3. MAGNESIUM [Concomitant]
     Active Substance: MAGNESIUM
  4. LISINOPRIL [Concomitant]
     Active Substance: LISINOPRIL
  5. AZATHIOPRINE [Concomitant]
     Active Substance: AZATHIOPRINE
  6. MYCOPHENOLIC ACID [Concomitant]
     Active Substance: MYCOPHENOLIC ACID

REACTIONS (1)
  - Spinal disorder [None]
